FAERS Safety Report 19137959 (Version 2)
Quarter: 2021Q2

REPORT INFORMATION
  Report Type: Report from Study
  Country: GB (occurrence: GB)
  Receive Date: 20210415
  Receipt Date: 20210422
  Transmission Date: 20210717
  Serious: No
  Sender: FDA-Public Use
  Company Number: GB-BIOGEN-2021BI00989889

PATIENT
  Age: 51 Year
  Sex: Male

DRUGS (2)
  1. PLEGRIDY [Suspect]
     Active Substance: PEGINTERFERON BETA-1A
     Route: 058
     Dates: start: 20210304
  2. PLEGRIDY [Suspect]
     Active Substance: PEGINTERFERON BETA-1A
     Indication: RELAPSING-REMITTING MULTIPLE SCLEROSIS
     Dosage: INITIATION 63MCG
     Route: 058
     Dates: start: 20210304

REACTIONS (4)
  - Gallbladder disorder [Unknown]
  - Injection site rash [Not Recovered/Not Resolved]
  - Influenza like illness [Recovered/Resolved]
  - Depressed mood [Not Recovered/Not Resolved]

NARRATIVE: CASE EVENT DATE: 202103
